FAERS Safety Report 4353389-6 (Version None)
Quarter: 2004Q2

REPORT INFORMATION
  Report Type: 
  Country: None (occurrence: None)
  Receive Date: 20040505
  Receipt Date: 20040428
  Transmission Date: 20050107
  Serious: Yes (Death, Hospitalization, Other)
  Sender: FDA-Public Use
  Company Number: FR-BRISTOL-MYERS SQUIBB COMPANY-12574505

PATIENT
  Age: 67 Year
  Sex: Female
  Weight: 60 kg

DRUGS (6)
  1. UFT [Suspect]
     Indication: SQUAMOUS CELL CARCINOMA
     Route: 048
     Dates: start: 20040223, end: 20040313
  2. CARBOPLATIN [Suspect]
     Indication: SQUAMOUS CELL CARCINOMA
     Route: 042
     Dates: start: 20040223, end: 20040226
  3. RADIATION THERAPY [Suspect]
     Dosage: ^GRAYS^-5 DAYS PER WEEK
  4. ACETAMINOPHEN [Concomitant]
     Dates: end: 20040315
  5. FOLINORAL [Concomitant]
     Dates: start: 20040223, end: 20040313
  6. CELECTOL [Concomitant]
     Dates: end: 20040315

REACTIONS (7)
  - ANAEMIA [None]
  - ASCITES [None]
  - DIARRHOEA HAEMORRHAGIC [None]
  - GASTROINTESTINAL MUCOSAL NECROSIS [None]
  - HYPOVOLAEMIC SHOCK [None]
  - ILEITIS [None]
  - LEUKOPENIA [None]
